FAERS Safety Report 9272796 (Version 1)
Quarter: 2013Q2

REPORT INFORMATION
  Report Type: Spontaneous
  Country: US (occurrence: US)
  Receive Date: 20130506
  Receipt Date: 20130506
  Transmission Date: 20140414
  Serious: No
  Sender: FDA-Public Use
  Company Number: US-ASTRAZENECA-2012SE31261

PATIENT
  Age: 62 Year
  Sex: Female

DRUGS (3)
  1. PRILOSEC OTC [Suspect]
     Route: 048
  2. NEXIUM [Concomitant]
  3. PREVACID [Concomitant]

REACTIONS (2)
  - Gastric disorder [Unknown]
  - Drug ineffective [Unknown]
